FAERS Safety Report 5938718-1 (Version None)
Quarter: 2008Q4

REPORT INFORMATION
  Report Type: 
  Country: None (occurrence: None)
  Receive Date: 20081103
  Receipt Date: 20081022
  Transmission Date: 20090506
  Serious: Yes (Hospitalization, Other)
  Sender: FDA-Public Use
  Company Number: DE-ROCHE-567870

PATIENT
  Sex: Male

DRUGS (4)
  1. BONIVA [Suspect]
     Indication: OSTEOPOROSIS
     Dosage: STRENGTH: 3MG/3ML FORM: SYRINGE
     Route: 042
     Dates: start: 20080525, end: 20080525
  2. CALCIUM DURA [Concomitant]
     Indication: OSTEOPOROSIS
     Dosage: TAKEN IN THE MORNING AND IN THE EVENING.
     Dates: start: 19970101
  3. VITAMINE D [Concomitant]
     Indication: OSTEOPOROSIS
     Dates: start: 19970101
  4. DEKRISTOL [Concomitant]
     Indication: OSTEOPOROSIS
     Dates: start: 20041101

REACTIONS (9)
  - CARPAL TUNNEL SYNDROME [None]
  - DRUG ADMINISTRATION ERROR [None]
  - HAEMATOMA [None]
  - INFLUENZA LIKE ILLNESS [None]
  - INJECTION SITE REACTION [None]
  - JOINT RANGE OF MOTION DECREASED [None]
  - NECROSIS [None]
  - PERIPHERAL NERVE INJURY [None]
  - PYREXIA [None]
